FAERS Safety Report 13752727 (Version 1)
Quarter: 2017Q3

REPORT INFORMATION
  Report Type: Spontaneous
  Country: US (occurrence: US)
  Receive Date: 20170713
  Receipt Date: 20170713
  Transmission Date: 20171127
  Serious: Yes (Disabling, Other)
  Sender: FDA-Public Use
  Company Number: None

PATIENT
  Age: 32 Year
  Sex: Male
  Weight: 65.25 kg

DRUGS (1)
  1. DIAZEPAM. [Suspect]
     Active Substance: DIAZEPAM
     Indication: ANXIETY

REACTIONS (7)
  - Depression [None]
  - Weight decreased [None]
  - Anxiety [None]
  - Abdominal pain upper [None]
  - Neuralgia [None]
  - Unevaluable event [None]
  - Insomnia [None]

NARRATIVE: CASE EVENT DATE: 20161029
